FAERS Safety Report 18389254 (Version 2)
Quarter: 2020Q4

REPORT INFORMATION
  Report Type: Report from Study
  Country: US (occurrence: US)
  Receive Date: 20201015
  Receipt Date: 20201124
  Transmission Date: 20210114
  Serious: Yes (Other)
  Sender: FDA-Public Use
  Company Number: US-SHIRE-US202033775

PATIENT
  Sex: Female

DRUGS (1)
  1. 476 (MESALAZINE/MESALAMINE) [Suspect]
     Active Substance: MESALAMINE
     Indication: PRODUCT USED FOR UNKNOWN INDICATION
     Dosage: 1.2 GRAM
     Route: 048
     Dates: start: 20190108

REACTIONS (3)
  - Colitis ulcerative [Unknown]
  - Unevaluable event [Unknown]
  - Stress [Unknown]
